FAERS Safety Report 6844113-3 (Version None)
Quarter: 2010Q3

REPORT INFORMATION
  Report Type: 
  Country: None (occurrence: None)
  Receive Date: 20100715
  Receipt Date: 20100707
  Transmission Date: 20110219
  Serious: Yes (Other)
  Sender: FDA-Public Use
  Company Number: A0763609A

PATIENT
  Age: 66 Year
  Sex: Female
  Weight: 85.5 kg

DRUGS (2)
  1. LAMICTAL [Suspect]
     Indication: EPILEPSY
     Dosage: 200MG TWICE PER DAY
     Route: 048
     Dates: start: 20070709
  2. THYROID MEDICATION [Concomitant]

REACTIONS (12)
  - ALOPECIA [None]
  - ANXIETY [None]
  - CHEST DISCOMFORT [None]
  - CHEST PAIN [None]
  - CONVULSION [None]
  - DRY MOUTH [None]
  - DYSKINESIA [None]
  - DYSPHONIA [None]
  - INSOMNIA [None]
  - PRURITUS [None]
  - SLEEP APNOEA SYNDROME [None]
  - STRESS [None]
